FAERS Safety Report 4700027-6 (Version None)
Quarter: 2005Q2

REPORT INFORMATION
  Report Type: 
  Country: None (occurrence: None)
  Receive Date: 20050623
  Receipt Date: 20040909
  Transmission Date: 20051028
  Serious: Yes (Hospitalization)
  Sender: FDA-Public Use
  Company Number: US-JNJFOC-20040903137

PATIENT
  Age: 46 Year
  Sex: Female
  Weight: 74.4 kg

DRUGS (4)
  1. HALDOL [Suspect]
     Indication: DRUG USE FOR UNKNOWN INDICATION
     Dosage: 16 MG, 1IN 1 DAY; 50 MG, 1 IN 1 DAY
     Dates: start: 20040722, end: 20040805
  2. HALDOL [Suspect]
     Indication: DRUG USE FOR UNKNOWN INDICATION
     Dosage: 16 MG, 1IN 1 DAY; 50 MG, 1 IN 1 DAY
     Dates: start: 20040806
  3. BIFEPRUNOX (ANTIPSYCHOTICS) UNKNOWN [Suspect]
     Indication: SCHIZOPHRENIA
     Dates: end: 20040722
  4. OLANZAPINE [Suspect]
     Indication: SCHIZOPHRENIA
     Dates: end: 20040722

REACTIONS (1)
  - PSYCHOTIC DISORDER [None]
